FAERS Safety Report 4712826-5 (Version None)
Quarter: 2005Q3

REPORT INFORMATION
  Report Type: 
  Country: None (occurrence: None)
  Receive Date: 20050712
  Receipt Date: 20050712
  Transmission Date: 20060218
  Serious: No
  Sender: FDA-Public Use
  Company Number: None

PATIENT
  Age: 57 Year
  Sex: Female
  Weight: 63.05 kg

DRUGS (3)
  1. ZOLOFT [Suspect]
     Indication: DYSTHYMIC DISORDER
     Dosage: 100 MG PO Q DAY
     Route: 048
     Dates: start: 19940101
  2. WELLBUTRIN SR [Concomitant]
  3. VIVELLE-DOT [Concomitant]

REACTIONS (4)
  - EYE HAEMORRHAGE [None]
  - HAEMATOMA [None]
  - POST PROCEDURAL COMPLICATION [None]
  - RETINAL TEAR [None]
